FAERS Safety Report 12159101 (Version 1)
Quarter: 2016Q1

REPORT INFORMATION
  Report Type: Spontaneous
  Country: US (occurrence: US)
  Receive Date: 20160308
  Receipt Date: 20160308
  Transmission Date: 20160526
  Serious: No
  Sender: FDA-Public Use
  Company Number: US-ACTAVIS-2015-26251

PATIENT
  Age: 60 Year
  Sex: Male

DRUGS (3)
  1. HYDROCHLOROTHIAZIDE (AELLC) [Suspect]
     Active Substance: HYDROCHLOROTHIAZIDE
     Indication: BLOOD PRESSURE MEASUREMENT
     Dosage: 12.5 MG, DAILY
     Route: 048
     Dates: start: 20151013
  2. HYDROCHLOROTHIAZIDE (AELLC) [Suspect]
     Active Substance: HYDROCHLOROTHIAZIDE
     Indication: VARICOSE VEIN
  3. CARDURA CR [Concomitant]
     Active Substance: DOXAZOSIN MESYLATE
     Indication: BLOOD PRESSURE MEASUREMENT
     Dosage: ^SMALL DOSE^, QPM
     Route: 048

REACTIONS (5)
  - Flatulence [Not Recovered/Not Resolved]
  - Abdominal distension [Not Recovered/Not Resolved]
  - Dyspepsia [Not Recovered/Not Resolved]
  - Dizziness [Recovered/Resolved]
  - Drug dose omission [Unknown]

NARRATIVE: CASE EVENT DATE: 20151013
